FAERS Safety Report 11980750 (Version 2)
Quarter: 2016Q1

REPORT INFORMATION
  Report Type: Spontaneous
  Country: JP (occurrence: JP)
  Receive Date: 20160129
  Receipt Date: 20160216
  Transmission Date: 20160526
  Serious: Yes (Death)
  Sender: FDA-Public Use
  Company Number: JP-MALLINCKRODT-T201506182

PATIENT
  Age: 41 Year
  Sex: Male
  Weight: 54 kg

DRUGS (23)
  1. FERRUM [Concomitant]
     Active Substance: FERROUS FUMARATE
     Dosage: 100 MG
     Route: 048
  2. JZOLOFT [Concomitant]
     Active Substance: SERTRALINE HYDROCHLORIDE
     Dosage: 25 MG
     Route: 048
     Dates: start: 20151009, end: 20151013
  3. MORPHINE HCL [Concomitant]
     Active Substance: MORPHINE HYDROCHLORIDE
     Indication: ANALGESIC THERAPY
     Dosage: 5 MG PRN
     Route: 048
     Dates: start: 20151030
  4. POSTERISAN [Concomitant]
     Active Substance: LIDOCAINE
     Dosage: 2 DF
     Route: 054
  5. SENNOSIDE [Concomitant]
     Active Substance: SENNOSIDES
     Dosage: 24 MG
     Route: 048
  6. LYRICA [Concomitant]
     Active Substance: PREGABALIN
     Indication: ANALGESIC THERAPY
     Dosage: 75 MG
     Route: 048
     Dates: start: 20151001, end: 20151013
  7. METHADONE [Suspect]
     Active Substance: METHADONE HYDROCHLORIDE
     Dosage: 5 MG (15 MG DAILY DOSE)
     Route: 048
     Dates: start: 20151026, end: 20151101
  8. PREPENON [Concomitant]
     Active Substance: MORPHINE HYDROCHLORIDE
     Indication: ANALGESIC THERAPY
     Dosage: 12 MG
     Route: 051
  9. METHADONE [Suspect]
     Active Substance: METHADONE HYDROCHLORIDE
     Indication: CANCER PAIN
     Dosage: 5 MG (15 MG DAILY DOSE)
     Route: 048
     Dates: start: 20151007, end: 20151012
  10. LORAZEPAM. [Concomitant]
     Active Substance: LORAZEPAM
     Dosage: 0.5 MG
     Route: 048
     Dates: start: 20151007
  11. METHADONE [Suspect]
     Active Substance: METHADONE HYDROCHLORIDE
     Dosage: 5 MG (5 MG DAILY DOSE)
     Route: 048
     Dates: start: 20151015, end: 20151018
  12. MAGMITT [Concomitant]
     Active Substance: MAGNESIUM OXIDE
     Dosage: 1980 MG
     Route: 048
  13. PARIET [Concomitant]
     Active Substance: RABEPRAZOLE SODIUM
     Dosage: 20 MG
     Route: 048
  14. CALCIUM LACTATE [Concomitant]
     Active Substance: CALCIUM LACTATE
     Dosage: 3 G
     Route: 048
     Dates: start: 20151014
  15. METHADONE [Suspect]
     Active Substance: METHADONE HYDROCHLORIDE
     Dosage: 5 MG (10 MG DAILY DOSE)
     Route: 048
     Dates: start: 20151013, end: 20151014
  16. METHADONE [Suspect]
     Active Substance: METHADONE HYDROCHLORIDE
     Dosage: 5 MG (10 MG DAILY DOSE)
     Route: 048
     Dates: start: 20151019, end: 20151025
  17. METHADONE [Suspect]
     Active Substance: METHADONE HYDROCHLORIDE
     Dosage: 10 MG (20 MG DAILY DOSE)
     Dates: start: 20151102
  18. OXINORM [Concomitant]
     Active Substance: OXYCODONE HYDROCHLORIDE
     Indication: ANALGESIC THERAPY
     Dosage: 10 MG PRN
     Route: 048
     Dates: start: 20151001
  19. REBAMIPIDE [Concomitant]
     Active Substance: REBAMIPIDE
     Dosage: 300 MG
     Route: 048
  20. PERAPRIN [Concomitant]
     Active Substance: METOCLOPRAMIDE
     Dosage: 5 MG
     Route: 048
  21. DESYREL [Concomitant]
     Active Substance: TRAZODONE HYDROCHLORIDE
     Dosage: 50 MG
     Route: 048
     Dates: start: 20151001
  22. BELSOMRA [Concomitant]
     Active Substance: SUVOREXANT
     Dosage: 20 MG
     Route: 048
     Dates: start: 20151001, end: 20151013
  23. LUNESTA [Concomitant]
     Active Substance: ESZOPICLONE
     Dosage: 1 MG
     Route: 048
     Dates: start: 20151001, end: 20151013

REACTIONS (3)
  - Lung adenocarcinoma [Fatal]
  - Somnolence [Recovered/Resolved]
  - Panic disorder [Not Recovered/Not Resolved]

NARRATIVE: CASE EVENT DATE: 20151009
